FAERS Safety Report 9017239 (Version 1)
Quarter: 2013Q1

REPORT INFORMATION
  Report Type: Spontaneous
  Country: DE (occurrence: DE)
  Receive Date: 20130117
  Receipt Date: 20130117
  Transmission Date: 20140127
  Serious: Yes (Other)
  Sender: FDA-Public Use
  Company Number: DE-PFIZER INC-2013014162

PATIENT
  Age: 72 Year
  Sex: Female

DRUGS (1)
  1. TREVILOR RETARD [Suspect]
     Dosage: 75 MG, UNK
     Dates: start: 2003

REACTIONS (3)
  - Facial nerve disorder [Unknown]
  - Tinnitus [Unknown]
  - Tremor [Unknown]
